FAERS Safety Report 17194250 (Version 2)
Quarter: 2019Q4

REPORT INFORMATION
  Report Type: Report from Study
  Country: NL (occurrence: NL)
  Receive Date: 20191224
  Receipt Date: 20191230
  Transmission Date: 20200122
  Serious: Yes (Hospitalization)
  Sender: FDA-Public Use
  Company Number: NL-ROCHE-2498703

PATIENT
  Age: 66 Year
  Sex: Female

DRUGS (4)
  1. CARBOPLATIN. [Suspect]
     Active Substance: CARBOPLATIN
     Indication: HER-2 POSITIVE BREAST CANCER
     Dosage: 510 AUC, DAY1,DAY8) (6MG ML/MIN ADMINISTERED INTRAVENOUSLY ON DAY 1 AS PER PROTOCOL).
     Route: 042
     Dates: start: 20191127
  2. PACLITAXEL. [Suspect]
     Active Substance: PACLITAXEL
     Indication: HER-2 POSITIVE BREAST CANCER
     Dosage: ON DAY1, DAY8 (80 MG/M2 ADMINISTERED INTRAVENOUSLY ON DAY 1 AND DAY 8 AS PER PROTOCOL).?ON 04/DEC/20
     Route: 042
     Dates: start: 20191127
  3. PERTUZUMAB. [Suspect]
     Active Substance: PERTUZUMAB
     Indication: HER-2 POSITIVE BREAST CANCER
     Dosage: (420 MG ADMINISTERED INTRAVENOUSLY ON DAY 1 (LOADING DOSE 840 MG AS PER PROTOCOL).
     Route: 042
     Dates: start: 20191127
  4. TRASTUZUMAB. [Suspect]
     Active Substance: TRASTUZUMAB
     Indication: HER-2 POSITIVE BREAST CANCER
     Dosage: (6 MG/KG ADMINISTERED INTRAVENOUSLY ON DAY 1 (LOADING DOSE 8 MG/KG) OR TRASTUZUMAB ADMINISTERED SUBC
     Route: 042
     Dates: start: 20191127

REACTIONS (1)
  - Malaise [Recovered/Resolved]

NARRATIVE: CASE EVENT DATE: 20191210
